FAERS Safety Report 11225186 (Version 1)
Quarter: 2015Q2

REPORT INFORMATION
  Report Type: Report from Study
  Country: AR (occurrence: AR)
  Receive Date: 20150629
  Receipt Date: 20150629
  Transmission Date: 20150821
  Serious: Yes (Other)
  Sender: FDA-Public Use
  Company Number: AR-BRISTOL-MYERS SQUIBB COMPANY-BMS-2015-041559

PATIENT
  Age: 67 Year
  Sex: Male

DRUGS (1)
  1. CETUXIMAB [Suspect]
     Active Substance: CETUXIMAB
     Indication: RENAL CANCER METASTATIC
     Dosage: 500 MG, QWK
     Route: 065
     Dates: start: 20120615

REACTIONS (3)
  - Pulmonary fibrosis [Unknown]
  - Chronic obstructive pulmonary disease [Unknown]
  - Off label use [Unknown]

NARRATIVE: CASE EVENT DATE: 20120615
